FAERS Safety Report 16489506 (Version 1)
Quarter: 2019Q2

REPORT INFORMATION
  Report Type: Spontaneous
  Country: CA (occurrence: CA)
  Receive Date: 20190628
  Receipt Date: 20190628
  Transmission Date: 20190711
  Serious: Yes (Life-Threatening, Other)
  Sender: FDA-Public Use
  Company Number: CA-AUROBINDO-AUR-APL-2019-036276

PATIENT

DRUGS (2)
  1. DULOXETINE. [Suspect]
     Active Substance: DULOXETINE
     Indication: ANXIETY
  2. DULOXETINE. [Suspect]
     Active Substance: DULOXETINE
     Indication: DEPRESSION
     Dosage: 120 MILLIGRAM, DAILY
     Route: 048

REACTIONS (7)
  - Drug ineffective [Unknown]
  - Irritability [Unknown]
  - Anxiety [Unknown]
  - Nightmare [Unknown]
  - Disturbance in attention [Unknown]
  - Suicidal ideation [Unknown]
  - Tremor [Unknown]
